FAERS Safety Report 6306454-8 (Version None)
Quarter: 2009Q3

REPORT INFORMATION
  Report Type: 
  Country: None (occurrence: None)
  Receive Date: 20090812
  Receipt Date: 20090806
  Transmission Date: 20100115
  Serious: Yes (Hospitalization)
  Sender: FDA-Public Use
  Company Number: FR-ASTRAZENECA-2009SE07173

PATIENT
  Age: 31414 Day
  Sex: Male

DRUGS (9)
  1. TRIATEC [Suspect]
     Route: 048
     Dates: end: 20090702
  2. NEXIUM [Suspect]
     Indication: ULCER
     Route: 048
     Dates: start: 20090605, end: 20090703
  3. CRESTOR [Concomitant]
  4. PARIET [Concomitant]
     Indication: ULCER
     Dates: end: 20090601
  5. LASIX [Concomitant]
  6. PREVISCAN [Concomitant]
     Dosage: 3/4 TABLET DAILY
  7. HEMIGOXINE [Concomitant]
  8. CACIT D3 [Concomitant]
     Dates: start: 20090526, end: 20090604
  9. XATRAL [Concomitant]
     Dates: start: 20090605

REACTIONS (2)
  - LEUKOPENIA [None]
  - NEUTROPENIA [None]
